FAERS Safety Report 18384321 (Version 2)
Quarter: 2020Q4

REPORT INFORMATION
  Report Type: Report from Study
  Country: MX (occurrence: MX)
  Receive Date: 20201015
  Receipt Date: 20201028
  Transmission Date: 20210114
  Serious: Yes (Hospitalization, Other)
  Sender: FDA-Public Use
  Company Number: NVSC2020MX274039

PATIENT
  Age: 85 Year
  Sex: Female
  Weight: 80 kg

DRUGS (8)
  1. ELIQUIS [Concomitant]
     Active Substance: APIXABAN
     Indication: ARRHYTHMIA
     Dosage: 2 DF, QD (4 YEARS AGO)
     Route: 048
  2. GALVUS MET [Suspect]
     Active Substance: METFORMIN HYDROCHLORIDE\VILDAGLIPTIN
     Dosage: 1 DF, QD
     Route: 048
     Dates: start: 2016
  3. METFORMIN [Concomitant]
     Active Substance: METFORMIN HYDROCHLORIDE
     Indication: BLOOD GLUCOSE ABNORMAL
     Dosage: UNK (10 YEARS AGO)
     Route: 048
     Dates: end: 2016
  4. CRESTOR [Concomitant]
     Active Substance: ROSUVASTATIN CALCIUM
     Indication: BLOOD TRIGLYCERIDES ABNORMAL
     Dosage: 1 DF, MONDAY, WEDNESDAY AND FRIDAY AT NIGHT (SINCE 10 YEARS AGO)
     Route: 048
  5. CONCOR [Concomitant]
     Active Substance: BISOPROLOL FUMARATE
     Indication: BLOOD PRESSURE MEASUREMENT
     Dosage: 1 DF, QD (AT NIGHT (SINCE 10 YEARS AGO))
     Route: 048
  6. CORDARONE [Concomitant]
     Active Substance: AMIODARONE HYDROCHLORIDE
     Indication: ARRHYTHMIA
     Dosage: 0.5 DF, MONDAY, WEDNESDAY AND FRIDAY (5 YEARS AGO)
     Route: 048
  7. GALVUS MET [Suspect]
     Active Substance: METFORMIN HYDROCHLORIDE\VILDAGLIPTIN
     Indication: BLOOD GLUCOSE
     Dosage: 1 DF, QD
     Route: 048
     Dates: start: 2016
  8. DIAMICRON [Concomitant]
     Active Substance: GLICLAZIDE
     Indication: BLOOD GLUCOSE ABNORMAL
     Dosage: 1 DF, QD (AT BREAKFAST)
     Route: 048
     Dates: start: 202008

REACTIONS (6)
  - Muscle rigidity [Recovering/Resolving]
  - Cardiac failure [Not Recovered/Not Resolved]
  - Hallucination [Recovering/Resolving]
  - Speech disorder [Not Recovered/Not Resolved]
  - Infarction [Recovered/Resolved with Sequelae]
  - Depressed level of consciousness [Recovering/Resolving]

NARRATIVE: CASE EVENT DATE: 20170205
